FAERS Safety Report 11672161 (Version 1)
Quarter: 2015Q4

REPORT INFORMATION
  Report Type: Spontaneous
  Country: US (occurrence: US)
  Receive Date: 20151027
  Receipt Date: 20151027
  Transmission Date: 20160304
  Serious: No
  Sender: FDA-Public Use
  Company Number: US-ELI_LILLY_AND_COMPANY-US201006004952

PATIENT
  Age: 55 Year
  Sex: Female

DRUGS (1)
  1. FORTEO [Suspect]
     Active Substance: TERIPARATIDE
     Indication: OSTEOPOROSIS
     Dosage: 20 UG, DAILY (1/D)
     Dates: start: 20100428

REACTIONS (10)
  - Musculoskeletal pain [Unknown]
  - Back pain [Unknown]
  - Lacrimal disorder [Unknown]
  - Dizziness [Recovered/Resolved]
  - Pain in extremity [Unknown]
  - Grip strength decreased [Unknown]
  - Hypoaesthesia [Unknown]
  - Drug dose omission [Unknown]
  - Arthralgia [Unknown]
  - Nausea [Recovered/Resolved]

NARRATIVE: CASE EVENT DATE: 20100616
